FAERS Safety Report 13940360 (Version 4)
Quarter: 2018Q3

REPORT INFORMATION
  Report Type: Spontaneous
  Country: IT (occurrence: IT)
  Receive Date: 20170906
  Receipt Date: 20180704
  Transmission Date: 20181010
  Serious: Yes (Life-Threatening)
  Sender: FDA-Public Use
  Company Number: IT-TEVA-802749ACC

PATIENT
  Sex: Female

DRUGS (6)
  1. CHARCOAL 50 GM [Concomitant]
     Route: 065
  2. ELOPRAM ? 20 MG COMPRESSE RIVESTITE ? LUNDBECK ITALIA S.P.A. [Suspect]
     Active Substance: CITALOPRAM HYDROBROMIDE
     Indication: PRODUCT USED FOR UNKNOWN INDICATION
     Route: 065
  3. MAGNESIUM SULPHATE 10GM1 SACHET [Concomitant]
     Route: 065
  4. QUETIAPINA TEVA ? 25 MG COMPRESSE RIVESTITE CON FILM [Suspect]
     Active Substance: QUETIAPINE
     Indication: PRODUCT USED FOR UNKNOWN INDICATION
     Route: 048
  5. ALPRAZOLAM EG ? 0,50 MG COMPRESSE ? EG S.P.A. [Suspect]
     Active Substance: ALPRAZOLAM
     Indication: PRODUCT USED FOR UNKNOWN INDICATION
     Route: 048
  6. ALCOHOL. [Suspect]
     Active Substance: ALCOHOL
     Route: 065

REACTIONS (2)
  - Drug abuse [Unknown]
  - Coma [Unknown]
